FAERS Safety Report 5369568-5 (Version None)
Quarter: 2007Q2

REPORT INFORMATION
  Report Type: 
  Country: None (occurrence: None)
  Receive Date: 20070620
  Receipt Date: 20070531
  Transmission Date: 20071010
  Serious: Yes (Hospitalization)
  Sender: FDA-Public Use
  Company Number: TPA2007A01242

PATIENT
  Age: 71 Year
  Sex: Female
  Weight: 58.9676 kg

DRUGS (27)
  1. ACTOS [Suspect]
     Indication: DIABETES MELLITUS NON-INSULIN-DEPENDENT
     Dosage: 15 MG, 1 IN 1 D, PER ORAL
     Route: 048
     Dates: start: 20070301, end: 20070501
  2. ATENOLOL [Concomitant]
  3. DILTIAZEM [Concomitant]
  4. FUROSEMIDE [Concomitant]
  5. KLOR-CON [Concomitant]
  6. NITROSTAT [Concomitant]
  7. ASPIRIN [Concomitant]
  8. LIPITOR [Concomitant]
  9. CIPRO [Concomitant]
  10. SYNTHROID [Concomitant]
  11. PREMARIN [Concomitant]
  12. CLOBETASOL CREAM (CLOBETASOL) [Concomitant]
  13. NYSTATIN CREAM (NYSTATIN) [Concomitant]
  14. NEXIUM [Concomitant]
  15. CLARINEX (PSEUDOEPHEDRINE SULFATE, LORATADINE) [Concomitant]
  16. NASALCROM [Concomitant]
  17. GABAPENTIN [Concomitant]
  18. HYDROCODONE/APAP (PARACETAMOL, HYDROCODONE) [Concomitant]
  19. FENTANYL PATCH (FENTANYL) [Concomitant]
  20. CYMBALTA [Concomitant]
  21. ACTONEL [Concomitant]
  22. PROCRIT [Concomitant]
  23. EVOXAC [Concomitant]
  24. CHLORHEXIDINE GLUCONATE [Concomitant]
  25. FORTAMET (METFORMIN) [Concomitant]
  26. POLYETHYLENE GLYCOL (MACROGOL) [Concomitant]
  27. IVP DYE (ALL OTHER THERAPEUTIC PRODUCTS) [Suspect]
     Dosage: INTRAVENOUS
     Route: 042

REACTIONS (5)
  - BODY HEIGHT DECREASED [None]
  - INSOMNIA [None]
  - OEDEMA PERIPHERAL [None]
  - RASH [None]
  - VENOUS INSUFFICIENCY [None]
